FAERS Safety Report 5600467-7 (Version None)
Quarter: 2008Q1

REPORT INFORMATION
  Report Type: 
  Country: None (occurrence: None)
  Receive Date: 20080118
  Receipt Date: 20080114
  Transmission Date: 20080703
  Serious: Yes (Other)
  Sender: FDA-Public Use
  Company Number: 2007SP023306

PATIENT
  Age: 59 Year
  Sex: Male
  Weight: 104.3 kg

DRUGS (5)
  1. PEG-INTRON [Suspect]
     Indication: HEPATITIS C
     Dosage: 60 MCG; QW; SC
     Route: 058
     Dates: start: 20070401, end: 20071130
  2. RIBAVIRIN [Suspect]
     Indication: HEPATITIS C
     Dosage: 1200 MG; QD; PO
     Route: 048
     Dates: start: 20070401, end: 20071101
  3. BUPROPION HCL [Concomitant]
  4. TRAZODONE HCL [Concomitant]
  5. VALSARTAN [Concomitant]

REACTIONS (4)
  - AMNESIA [None]
  - RETINAL TOXICITY [None]
  - URTICARIA [None]
  - VITREOUS DEGENERATION [None]
